FAERS Safety Report 8808722 (Version 1)
Quarter: 2012Q4

REPORT INFORMATION
  Report Type: 
  Country: US (occurrence: US)
  Receive Date: 20120926
  Receipt Date: 20120926
  Transmission Date: 20130627
  Serious: Yes (Disabling, Other)
  Sender: FDA-Public Use
  Company Number: US-BAYER-2012-099786

PATIENT
  Age: 46 Year
  Sex: Female
  Weight: 59 kg

DRUGS (6)
  1. CIPRO [Suspect]
     Indication: URINARY TRACT INFECTION
     Dosage: UNK
     Dates: start: 201206, end: 2012
  2. AMPYRA [Suspect]
     Indication: GAIT DISTURBANCE
     Dosage: 10 mg, QD
     Route: 048
     Dates: start: 201205, end: 2012
  3. FOCALIN [Concomitant]
     Dosage: UNK
  4. SYNTHROID [Concomitant]
     Dosage: UNK
  5. COLON CLEANSER NATURAL DETOX FORMULA [Concomitant]
     Dosage: UNK
  6. IBUPROFEN [Concomitant]
     Dosage: UNK

REACTIONS (5)
  - Dizziness [Not Recovered/Not Resolved]
  - Tremor [Recovered/Resolved]
  - Dysstasia [None]
  - Nausea [None]
  - Respiratory rate increased [None]
